FAERS Safety Report 5951840-9 (Version None)
Quarter: 2008Q4

REPORT INFORMATION
  Report Type: 
  Country: None (occurrence: None)
  Receive Date: 20081113
  Receipt Date: 20081112
  Transmission Date: 20090506
  Serious: Yes (Other)
  Sender: FDA-Public Use
  Company Number: B0546107A

PATIENT
  Age: 70 Year
  Sex: Female

DRUGS (1)
  1. SAWACILLIN [Suspect]
     Indication: ACUTE TONSILLITIS
     Route: 048
     Dates: start: 20081027

REACTIONS (3)
  - ANOREXIA [None]
  - PYREXIA [None]
  - RASH GENERALISED [None]
